FAERS Safety Report 16418115 (Version 1)
Quarter: 2019Q2

REPORT INFORMATION
  Report Type: Report from Study
  Country: None (occurrence: US)
  Receive Date: 20190611
  Receipt Date: 20190611
  Transmission Date: 20190711
  Serious: Yes (Hospitalization)
  Sender: FDA-Public Use
  Company Number: US-ABBVIE-19K-163-2775598-00

PATIENT
  Age: 66 Year
  Sex: Male
  Weight: 71.73 kg

DRUGS (7)
  1. ASPIRIN. [Concomitant]
     Active Substance: ASPIRIN
     Indication: ISCHAEMIC HEART DISEASE PROPHYLAXIS
  2. PRAVACHOL [Concomitant]
     Active Substance: PRAVASTATIN SODIUM
     Indication: BLOOD CHOLESTEROL INCREASED
  3. HUMIRA [Suspect]
     Active Substance: ADALIMUMAB
     Indication: PSORIASIS
     Route: 058
     Dates: start: 2016
  4. LOPRESSOR [Concomitant]
     Active Substance: METOPROLOL TARTRATE
     Indication: CARDIAC DISORDER
  5. PLAVIX [Concomitant]
     Active Substance: CLOPIDOGREL BISULFATE
     Indication: THROMBOSIS PROPHYLAXIS
  6. AMIODARONE [Concomitant]
     Active Substance: AMIODARONE
     Indication: HEART RATE IRREGULAR
  7. FLOMAX [Concomitant]
     Active Substance: TAMSULOSIN HYDROCHLORIDE
     Indication: CARDIAC DISORDER

REACTIONS (6)
  - Thrombosis [Recovered/Resolved]
  - Coronary artery occlusion [Recovered/Resolved]
  - Hypertension [Recovered/Resolved]
  - Heart rate increased [Recovered/Resolved]
  - Hyperventilation [Recovered/Resolved]
  - Myocardial infarction [Recovering/Resolving]

NARRATIVE: CASE EVENT DATE: 201811
